FAERS Safety Report 5751730-0 (Version None)
Quarter: 2008Q2

REPORT INFORMATION
  Report Type: 
  Country: None (occurrence: None)
  Receive Date: 20080529
  Receipt Date: 20080522
  Transmission Date: 20081010
  Serious: Yes (Hospitalization)
  Sender: FDA-Public Use
  Company Number: DE-RANBAXY-2008RR-15317

PATIENT

DRUGS (2)
  1. LORAZEPAM [Suspect]
     Dosage: 2.5 MG, UNK
  2. QUETIAPINE FUMARATE [Suspect]
     Dosage: 100 MG, UNK

REACTIONS (3)
  - DRUG INTERACTION [None]
  - LOSS OF CONSCIOUSNESS [None]
  - RESPIRATORY FAILURE [None]
